FAERS Safety Report 5836332-X (Version None)
Quarter: 2008Q3

REPORT INFORMATION
  Report Type: 
  Country: None (occurrence: None)
  Receive Date: 20080807
  Receipt Date: 20080730
  Transmission Date: 20090109
  Serious: Yes (Other)
  Sender: FDA-Public Use
  Company Number: GB-RANBAXY-2008RR-16867

PATIENT

DRUGS (2)
  1. ISOTRETINOIN [Suspect]
     Dosage: 4 MG, UNK
     Route: 048
     Dates: start: 20080407, end: 20080620
  2. MICROGYNON [Suspect]
     Indication: CONTRACEPTION
     Route: 048

REACTIONS (1)
  - PREGNANCY ON ORAL CONTRACEPTIVE [None]
